FAERS Safety Report 12935219 (Version 1)
Quarter: 2016Q4

REPORT INFORMATION
  Report Type: Spontaneous
  Country: US (occurrence: US)
  Receive Date: 20161114
  Receipt Date: 20161114
  Transmission Date: 20170207
  Serious: No
  Sender: FDA-Public Use
  Company Number: US-JAZZ-2016-US-018352

PATIENT
  Age: 45 Year
  Sex: Female

DRUGS (33)
  1. XYREM [Suspect]
     Active Substance: SODIUM OXYBATE
     Indication: NARCOLEPSY
     Dosage: 1.25 G, BID
     Route: 048
     Dates: start: 201606, end: 201606
  2. ADDERALL [Concomitant]
     Active Substance: AMPHETAMINE ASPARTATE\AMPHETAMINE SULFATE\DEXTROAMPHETAMINE SACCHARATE\DEXTROAMPHETAMINE SULFATE
  3. DIAZEPAM. [Concomitant]
     Active Substance: DIAZEPAM
  4. DOXYCYCLINE HYCLATE. [Concomitant]
     Active Substance: DOXYCYCLINE HYCLATE
  5. NAPROXEN. [Concomitant]
     Active Substance: NAPROXEN
  6. ONDANSETRON HYDROCHLORIDE. [Concomitant]
     Active Substance: ONDANSETRON HYDROCHLORIDE
  7. BENADRYL ALLERGY [Concomitant]
     Active Substance: DIPHENHYDRAMINE HYDROCHLORIDE
  8. FOLIC ACID. [Concomitant]
     Active Substance: FOLIC ACID
  9. GINSENG                            /01199605/ [Concomitant]
     Active Substance: ASIAN GINSENG
  10. METFORMIN HCL [Concomitant]
     Active Substance: METFORMIN HYDROCHLORIDE
  11. NORCO [Concomitant]
     Active Substance: ACETAMINOPHEN\HYDROCODONE BITARTRATE
  12. ZYRTEC [Concomitant]
     Active Substance: CETIRIZINE HYDROCHLORIDE
  13. XYREM [Suspect]
     Active Substance: SODIUM OXYBATE
     Indication: CATAPLEXY
     Dosage: 2.25 G, BID
     Route: 048
     Dates: start: 201606, end: 201608
  14. IBUPROFEN. [Concomitant]
     Active Substance: IBUPROFEN
  15. LISINOPRIL. [Concomitant]
     Active Substance: LISINOPRIL
  16. SYNTHROID [Concomitant]
     Active Substance: LEVOTHYROXINE SODIUM
  17. ZYPREXA [Concomitant]
     Active Substance: OLANZAPINE
  18. LEVOXYL [Concomitant]
     Active Substance: LEVOTHYROXINE SODIUM
  19. VESICARE [Concomitant]
     Active Substance: SOLIFENACIN SUCCINATE
  20. XYREM [Suspect]
     Active Substance: SODIUM OXYBATE
     Dosage: 3 G, BID
     Route: 048
     Dates: start: 201608
  21. ALEVE [Concomitant]
     Active Substance: NAPROXEN SODIUM
  22. AVAPRO [Concomitant]
     Active Substance: IRBESARTAN
  23. SINGULAIR [Concomitant]
     Active Substance: MONTELUKAST SODIUM
  24. VITAMIN D                          /00107901/ [Concomitant]
     Active Substance: ERGOCALCIFEROL
  25. ASPIRIN EC [Concomitant]
     Active Substance: ASPIRIN
  26. OMEPRAZOLE. [Concomitant]
     Active Substance: OMEPRAZOLE
  27. PROTONIX                           /00661201/ [Concomitant]
     Active Substance: OMEPRAZOLE
  28. DIAMOX                             /00016901/ [Concomitant]
     Active Substance: ACETAZOLAMIDE
  29. POTASSIUM GLUCONATE [Concomitant]
     Active Substance: POTASSIUM GLUCONATE
  30. PREDNISONE. [Concomitant]
     Active Substance: PREDNISONE
  31. PREVACID [Concomitant]
     Active Substance: LANSOPRAZOLE
  32. VALTREX [Concomitant]
     Active Substance: VALACYCLOVIR HYDROCHLORIDE
  33. ZINC GLUCONATE [Concomitant]
     Active Substance: ZINC GLUCONATE

REACTIONS (3)
  - Root canal infection [Unknown]
  - Tooth injury [Not Recovered/Not Resolved]
  - Bruxism [Unknown]

NARRATIVE: CASE EVENT DATE: 2016
